FAERS Safety Report 8260997-9 (Version None)
Quarter: 2012Q2

REPORT INFORMATION
  Report Type: 
  Country: None (occurrence: None)
  Receive Date: 20120405
  Receipt Date: 20120326
  Transmission Date: 20120825
  Serious: Yes (Death, Other)
  Sender: FDA-Public Use
  Company Number: US-JNJFOC-20110601433

PATIENT
  Sex: Female
  Weight: 131.09 kg

DRUGS (9)
  1. PROTONIX [Concomitant]
     Route: 065
  2. NOVOLOG [Concomitant]
     Route: 065
  3. PENTASA [Concomitant]
  4. VITAMIN D [Concomitant]
     Route: 065
  5. LANTUS [Concomitant]
     Route: 065
  6. DIOVAN [Concomitant]
     Route: 065
  7. REGLAN [Concomitant]
  8. REMICADE [Suspect]
     Indication: CROHN'S DISEASE
     Route: 042
  9. CARAFATE [Concomitant]

REACTIONS (8)
  - TACHYCARDIA [None]
  - ABSCESS [None]
  - CARDIOMEGALY [None]
  - HEPATOMEGALY [None]
  - ABDOMINAL PAIN [None]
  - CORONARY ARTERY STENOSIS [None]
  - CELLULITIS [None]
  - PULMONARY EMBOLISM [None]
